FAERS Safety Report 5130607-8 (Version None)
Quarter: 2006Q4

REPORT INFORMATION
  Report Type: 
  Country: None (occurrence: None)
  Receive Date: 20061018
  Receipt Date: 20061018
  Transmission Date: 20070319
  Serious: Yes (Other)
  Sender: FDA-Public Use
  Company Number: None

PATIENT
  Age: 72 Year
  Sex: Male
  Weight: 116 kg

DRUGS (1)
  1. NEOSTIGMINE 1MG/ML 10ML VIAL AMERICAN REGENT [Suspect]
     Indication: NEUROMUSCULAR BLOCKADE REVERSAL
     Dosage: 5MG X 2 -Q1 HR X 2 IV BOLUS
     Route: 040
     Dates: start: 20061016, end: 20061017

REACTIONS (4)
  - DRUG INEFFECTIVE [None]
  - NEUROMUSCULAR BLOCK PROLONGED [None]
  - PARALYSIS [None]
  - POST PROCEDURAL COMPLICATION [None]
